FAERS Safety Report 5610442-4 (Version None)
Quarter: 2008Q1

REPORT INFORMATION
  Report Type: 
  Country: None (occurrence: None)
  Receive Date: 20080128
  Receipt Date: 20080116
  Transmission Date: 20080703
  Serious: Yes (Other)
  Sender: FDA-Public Use
  Company Number: 2008AP000292

PATIENT
  Age: 67 Year
  Sex: Female

DRUGS (1)
  1. LORATADINE [Suspect]
     Indication: NASOPHARYNGITIS
     Dosage: PO
     Route: 048

REACTIONS (1)
  - BLOOD PRESSURE INCREASED [None]
